FAERS Safety Report 15268546 (Version 1)
Quarter: 2018Q3

REPORT INFORMATION
  Report Type: Spontaneous
  Country: US (occurrence: US)
  Receive Date: 20180725
  Receipt Date: 20180725
  Transmission Date: 20181010
  Serious: Yes (Hospitalization)
  Sender: FDA-Public Use
  Company Number: None

PATIENT
  Age: 53 Year
  Sex: Male

DRUGS (15)
  1. JANUMET [Concomitant]
     Active Substance: METFORMIN HYDROCHLORIDE\SITAGLIPTIN PHOSPHATE
  2. OXYCODONE [Concomitant]
     Active Substance: OXYCODONE
  3. RANITIDINE. [Concomitant]
     Active Substance: RANITIDINE
  4. VICTOZA [Concomitant]
     Active Substance: LIRAGLUTIDE
  5. GLIPIZIDE ER [Concomitant]
     Active Substance: GLIPIZIDE
  6. LOSARTAN. [Concomitant]
     Active Substance: LOSARTAN
  7. TOUJEO [Concomitant]
     Active Substance: INSULIN GLARGINE
  8. DIAZEPAM. [Concomitant]
     Active Substance: DIAZEPAM
  9. IBUPROFEN. [Concomitant]
     Active Substance: IBUPROFEN
  10. FOLIC ACID. [Concomitant]
     Active Substance: FOLIC ACID
  11. INVOKANA [Concomitant]
     Active Substance: CANAGLIFLOZIN
  12. OMEPRAZOLE. [Concomitant]
     Active Substance: OMEPRAZOLE
  13. VALIUM [Concomitant]
     Active Substance: DIAZEPAM
  14. HUMIRA [Suspect]
     Active Substance: ADALIMUMAB
     Indication: RHEUMATOID ARTHRITIS
     Route: 058
     Dates: start: 20180324
  15. ENBREL [Suspect]
     Active Substance: ETANERCEPT
     Indication: RHEUMATOID ARTHRITIS
     Route: 058
     Dates: start: 20170924, end: 201803

REACTIONS (2)
  - Abdominal hernia [None]
  - Umbilical hernia [None]
